FAERS Safety Report 13045114 (Version 4)
Quarter: 2017Q2

REPORT INFORMATION
  Report Type: Spontaneous
  Country: DK (occurrence: DK)
  Receive Date: 20161220
  Receipt Date: 20170413
  Transmission Date: 20170830
  Serious: Yes (Hospitalization, Disabling)
  Sender: FDA-Public Use
  Company Number: PHHY2016DK170870

PATIENT
  Age: 43 Year
  Sex: Female

DRUGS (2)
  1. GESTONETTE [Suspect]
     Active Substance: ETHINYL ESTRADIOL\GESTODENE
     Indication: CONTRACEPTION
     Route: 065
  2. CENTYL [Concomitant]
     Active Substance: BENDROFLUMETHIAZIDE
     Indication: OEDEMA
     Route: 065

REACTIONS (6)
  - Thrombosis [Unknown]
  - Pain in extremity [Recovered/Resolved]
  - Peripheral swelling [Not Recovered/Not Resolved]
  - Oedema peripheral [Unknown]
  - Vascular pain [Unknown]
  - Groin pain [Unknown]

NARRATIVE: CASE EVENT DATE: 20151111
